FAERS Safety Report 5744722-9 (Version None)
Quarter: 2008Q2

REPORT INFORMATION
  Report Type: 
  Country: None (occurrence: None)
  Receive Date: 20080516
  Receipt Date: 20080415
  Transmission Date: 20081010
  Serious: Yes (Disabling)
  Sender: FDA-Public Use
  Company Number: 2008000879

PATIENT
  Age: 82 Year
  Sex: Female

DRUGS (7)
  1. TARCEVA [Suspect]
     Indication: NON-SMALL CELL LUNG CANCER
     Dosage: (25 MG, QD), ORAL
     Route: 048
  2. POTASSIUM (POTASSIUM) [Concomitant]
  3. FUROSEMIDE [Concomitant]
  4. AMIODARONE HCL [Concomitant]
  5. WARFARIN SODIUM [Concomitant]
  6. DIGOXIN [Concomitant]
  7. SYNTHROID [Concomitant]

REACTIONS (9)
  - ERYTHEMA [None]
  - HAEMOPTYSIS [None]
  - HYPOACUSIS [None]
  - HYPOTRICHOSIS [None]
  - INSOMNIA [None]
  - INTERNATIONAL NORMALISED RATIO INCREASED [None]
  - RHINORRHOEA [None]
  - VISUAL ACUITY REDUCED [None]
  - WEIGHT DECREASED [None]
